FAERS Safety Report 6146310-1 (Version None)
Quarter: 2009Q2

REPORT INFORMATION
  Report Type: 
  Country: None (occurrence: None)
  Receive Date: 20090403
  Receipt Date: 20090403
  Transmission Date: 20091009
  Serious: Yes (Other)
  Sender: FDA-Public Use
  Company Number: None

PATIENT
  Age: 45 Year
  Sex: Female

DRUGS (2)
  1. PROMETHAZINE [Suspect]
     Indication: DIVERTICULITIS
     Dosage: ONCE IV
     Route: 042
     Dates: start: 20080821, end: 20080821
  2. PROMETHAZINE [Suspect]
     Indication: NAUSEA
     Dosage: ONCE IV
     Route: 042
     Dates: start: 20080821, end: 20080821

REACTIONS (4)
  - ERYTHEMA [None]
  - FEELING HOT [None]
  - INFUSION RELATED REACTION [None]
  - PAIN IN EXTREMITY [None]
